FAERS Safety Report 5031241-0 (Version None)
Quarter: 2006Q2

REPORT INFORMATION
  Report Type: 
  Country: None (occurrence: None)
  Receive Date: 20060621
  Receipt Date: 20060517
  Transmission Date: 20061013
  Serious: No
  Sender: FDA-Public Use
  Company Number: US-GLAXOSMITHKLINE-A0606049A

PATIENT
  Age: 78 Year
  Sex: Male
  Weight: 97.3 kg

DRUGS (3)
  1. AVANDARYL [Suspect]
     Dosage: 1TAB PER DAY
     Route: 048
     Dates: end: 20060515
  2. TOPROL-XL [Concomitant]
  3. ALTACE [Concomitant]

REACTIONS (1)
  - HYPOTENSION [None]
